FAERS Safety Report 11079950 (Version 1)
Quarter: 2015Q2

REPORT INFORMATION
  Report Type: Report from Study
  Country: US (occurrence: US)
  Receive Date: 20150430
  Receipt Date: 20150430
  Transmission Date: 20150821
  Serious: Yes (Other)
  Sender: FDA-Public Use
  Company Number: US-GILEAD-2015-0148485

PATIENT
  Age: 67 Year
  Sex: Male

DRUGS (1)
  1. LEDIPASVIR/SOFOSBUVIR [Suspect]
     Active Substance: LEDIPASVIR\SOFOSBUVIR
     Indication: CHRONIC HEPATITIS C
     Dosage: 1 DF, UNK
     Route: 048
     Dates: start: 20150402

REACTIONS (7)
  - Urine abnormality [Unknown]
  - Fatigue [Unknown]
  - Renal pain [Unknown]
  - Feeling abnormal [Unknown]
  - Gingival abscess [Unknown]
  - Urine output increased [Unknown]
  - Tooth fracture [Unknown]

NARRATIVE: CASE EVENT DATE: 20150407
